FAERS Safety Report 8470475-X (Version None)
Quarter: 2012Q2

REPORT INFORMATION
  Report Type: 
  Country: None (occurrence: None)
  Receive Date: 20120627
  Receipt Date: 20120622
  Transmission Date: 20120825
  Serious: Yes (Other)
  Sender: FDA-Public Use
  Company Number: US-BAYER-2012-062844

PATIENT
  Age: 39 Year
  Sex: Male

DRUGS (1)
  1. MAGNEVIST [Suspect]
     Indication: INVESTIGATION
     Dosage: 20 ML, UNK
     Route: 042
     Dates: start: 20120622, end: 20120622

REACTIONS (6)
  - HYPERHIDROSIS [None]
  - FEELING HOT [None]
  - PRURITUS [None]
  - NAUSEA [None]
  - RETCHING [None]
  - BURNING SENSATION [None]
